FAERS Safety Report 4325818-5 (Version None)
Quarter: 2004Q1

REPORT INFORMATION
  Report Type: 
  Country: None (occurrence: None)
  Receive Date: 20040329
  Receipt Date: 20040322
  Transmission Date: 20041129
  Serious: Yes (Life-Threatening)
  Sender: FDA-Public Use
  Company Number: PHHO2004NL04181

PATIENT
  Age: 52 Year
  Sex: Female

DRUGS (2)
  1. CYCLOSPORINE [Suspect]
     Indication: LIVER TRANSPLANT
     Dosage: 1500 MG/DAILY
     Route: 048
     Dates: start: 20040313, end: 20040322
  2. STEROIDS NOS [Concomitant]

REACTIONS (4)
  - ANURIA [None]
  - CARDIAC ARREST [None]
  - PNEUMONIA ASPIRATION [None]
  - SEPTIC SHOCK [None]
